FAERS Safety Report 5200107-5 (Version None)
Quarter: 2007Q1

REPORT INFORMATION
  Report Type: 
  Country: None (occurrence: None)
  Receive Date: 20070105
  Receipt Date: 20061227
  Transmission Date: 20070707
  Serious: Yes (Hospitalization)
  Sender: FDA-Public Use
  Company Number: FR-GLAXOSMITHKLINE-B0451823A

PATIENT
  Age: 26 Year
  Sex: Female

DRUGS (2)
  1. PAROXETINE HCL [Suspect]
     Indication: PANIC DISORDER
     Dosage: 20MG PER DAY
     Route: 048
     Dates: start: 20061001
  2. XANAX [Concomitant]
     Indication: ANXIETY

REACTIONS (2)
  - SENSATION OF HEAVINESS [None]
  - URINARY INCONTINENCE [None]
